FAERS Safety Report 21957236 (Version 1)
Quarter: 2023Q1

REPORT INFORMATION
  Report Type: Report from Study
  Country: JP (occurrence: JP)
  Receive Date: 20230206
  Receipt Date: 20230206
  Transmission Date: 20230417
  Serious: Yes (Death, Other)
  Sender: FDA-Public Use
  Company Number: JP-CELLTRION INC.-2020JP021162

PATIENT

DRUGS (37)
  1. INVESTIGATIONAL BIOSIMILARS [Suspect]
     Active Substance: INVESTIGATIONAL BIOSIMILARS
     Indication: HER2 positive gastric cancer
     Dosage: 418 MG QD (EVERY ADMINISTRATION)
     Route: 041
     Dates: start: 20191217, end: 20191217
  2. INVESTIGATIONAL BIOSIMILARS [Suspect]
     Active Substance: INVESTIGATIONAL BIOSIMILARS
     Dosage: 310 MG QD (EVERY ADMINISTRATION)
     Route: 041
     Dates: start: 20200106, end: 20200106
  3. INVESTIGATIONAL BIOSIMILARS [Suspect]
     Active Substance: INVESTIGATIONAL BIOSIMILARS
     Dosage: 310 MG QD (EVERY ADMINISTRATION)
     Route: 041
     Dates: start: 20200127, end: 20200127
  4. INVESTIGATIONAL BIOSIMILARS [Suspect]
     Active Substance: INVESTIGATIONAL BIOSIMILARS
     Dosage: 310 MG QD (EVERY ADMINISTRATION)
     Route: 041
     Dates: start: 20200217, end: 20200217
  5. INVESTIGATIONAL BIOSIMILARS [Suspect]
     Active Substance: INVESTIGATIONAL BIOSIMILARS
     Dosage: 418 MG, QD
     Route: 041
     Dates: start: 20220323, end: 20220323
  6. INVESTIGATIONAL BIOSIMILARS [Suspect]
     Active Substance: INVESTIGATIONAL BIOSIMILARS
     Dosage: 310 MG, QD
     Route: 041
     Dates: start: 20220413, end: 20220413
  7. INVESTIGATIONAL BIOSIMILARS [Suspect]
     Active Substance: INVESTIGATIONAL BIOSIMILARS
     Dosage: 310 MG, QD
     Route: 041
     Dates: start: 20200511, end: 20200511
  8. OXALIPLATIN [Suspect]
     Active Substance: OXALIPLATIN
     Indication: HER2 positive gastric cancer
     Dosage: 155 MG, QD
     Route: 041
     Dates: start: 20191217
  9. OXALIPLATIN [Suspect]
     Active Substance: OXALIPLATIN
     Dosage: 155 MG, QD
     Route: 041
     Dates: start: 20200106
  10. OXALIPLATIN [Suspect]
     Active Substance: OXALIPLATIN
     Dosage: 155 MG, QD
     Route: 041
     Dates: start: 20200127
  11. OXALIPLATIN [Suspect]
     Active Substance: OXALIPLATIN
     Dosage: 155 MG, QD
     Route: 041
     Dates: start: 20200217, end: 20200217
  12. OXALIPLATIN [Suspect]
     Active Substance: OXALIPLATIN
     Dosage: 155 MG, QD
     Route: 041
     Dates: start: 20220323, end: 20220323
  13. OXALIPLATIN [Suspect]
     Active Substance: OXALIPLATIN
     Dosage: 124 MG, QD
     Route: 041
     Dates: start: 20200413, end: 20220413
  14. GIMERACIL\OTERACIL\TEGAFUR [Suspect]
     Active Substance: GIMERACIL\OTERACIL\TEGAFUR
     Indication: HER2 positive gastric cancer
     Dosage: 120 MG, QD
     Route: 048
     Dates: start: 20191217, end: 20191231
  15. GIMERACIL\OTERACIL\TEGAFUR [Suspect]
     Active Substance: GIMERACIL\OTERACIL\TEGAFUR
     Dosage: 120 MG
     Route: 048
     Dates: start: 20200106, end: 20200120
  16. GIMERACIL\OTERACIL\TEGAFUR [Suspect]
     Active Substance: GIMERACIL\OTERACIL\TEGAFUR
     Dosage: 120 MG
     Route: 048
     Dates: start: 20200127, end: 20200207
  17. GIMERACIL\OTERACIL\TEGAFUR [Suspect]
     Active Substance: GIMERACIL\OTERACIL\TEGAFUR
     Dosage: 100 MG
     Route: 048
     Dates: start: 20200217, end: 20200221
  18. GIMERACIL\OTERACIL\TEGAFUR [Suspect]
     Active Substance: GIMERACIL\OTERACIL\TEGAFUR
     Dosage: 100 MG, QD
     Route: 048
     Dates: start: 20200323, end: 20200406
  19. GIMERACIL\OTERACIL\TEGAFUR [Suspect]
     Active Substance: GIMERACIL\OTERACIL\TEGAFUR
     Dosage: 80 MG, QD
     Route: 048
     Dates: start: 20200413, end: 20200427
  20. GIMERACIL\OTERACIL\TEGAFUR [Suspect]
     Active Substance: GIMERACIL\OTERACIL\TEGAFUR
     Dosage: 80 MG, QD
     Route: 048
     Dates: start: 20200511, end: 20200525
  21. LOXOPROFEN SODIUM DIHYDRATE [Concomitant]
     Active Substance: LOXOPROFEN SODIUM DIHYDRATE
     Dosage: UNK
     Dates: start: 20191210
  22. SODIUM FERROUS CITRATE [Concomitant]
     Active Substance: SODIUM FERROUS CITRATE
     Indication: Iron deficiency anaemia
     Dosage: UNK
     Dates: start: 20191210, end: 20200114
  23. TRAMADOL [Concomitant]
     Active Substance: TRAMADOL
     Indication: Cancer pain
     Dosage: UNK
     Dates: start: 20191212, end: 20191215
  24. MOSAPRIDE CITRATE [Concomitant]
     Active Substance: MOSAPRIDE CITRATE
     Dosage: UNK
     Dates: start: 20191212
  25. VONOPRAZAN FUMARATE [Concomitant]
     Active Substance: VONOPRAZAN FUMARATE
     Indication: HER2 positive gastric cancer
     Dosage: UNK
     Dates: start: 20200106
  26. OLANZAPINE [Concomitant]
     Active Substance: OLANZAPINE
     Dosage: UNK
     Dates: start: 20200106, end: 20200120
  27. HYDROMORPHONE HYDROCHLORIDE [Concomitant]
     Active Substance: HYDROMORPHONE HYDROCHLORIDE
     Dosage: UNK
     Dates: start: 20191216
  28. DECADRON [Concomitant]
     Active Substance: DEXAMETHASONE
     Dosage: UNK
     Dates: start: 20191218
  29. CALONAL [Concomitant]
     Active Substance: ACETAMINOPHEN
     Dosage: UNK
     Dates: start: 20191218
  30. DIMETHICONE [Concomitant]
     Active Substance: DIMETHICONE
     Dosage: UNK
     Dates: start: 20200309
  31. HYDROMORPHONE HYDROCHLORIDE [Concomitant]
     Active Substance: HYDROMORPHONE HYDROCHLORIDE
     Dosage: UNK
     Dates: start: 20220311
  32. APREPITANT [Concomitant]
     Active Substance: APREPITANT
     Indication: Prophylaxis of nausea and vomiting
     Dosage: UNK
     Dates: start: 20200323
  33. APREPITANT [Concomitant]
     Active Substance: APREPITANT
     Indication: Prophylaxis of nausea and vomiting
  34. HERBALS [Concomitant]
     Active Substance: HERBALS
     Indication: Abdominal symptom
     Dosage: UNK
     Dates: start: 20220312
  35. SYMPROIC [Concomitant]
     Active Substance: NALDEMEDINE
     Indication: Constipation prophylaxis
     Dosage: UNK
     Dates: start: 20200309
  36. BELSOMRA [Concomitant]
     Active Substance: SUVOREXANT
     Indication: Prophylaxis
     Dosage: UNK
     Dates: start: 20200309
  37. MAGNESIUM OXIDE [Concomitant]
     Active Substance: MAGNESIUM OXIDE
     Dosage: UNK
     Dates: start: 20200309

REACTIONS (5)
  - HER2 positive gastric cancer [Fatal]
  - Decreased appetite [Recovered/Resolved]
  - Anaemia [Not Recovered/Not Resolved]
  - Off label use [Unknown]
  - Overdose [Unknown]

NARRATIVE: CASE EVENT DATE: 20200207
